FAERS Safety Report 12989148 (Version 2)
Quarter: 2017Q1

REPORT INFORMATION
  Report Type: Spontaneous
  Country: BR (occurrence: BR)
  Receive Date: 20161201
  Receipt Date: 20170306
  Transmission Date: 20170428
  Serious: Yes (Other)
  Sender: FDA-Public Use
  Company Number: BR-ORION CORPORATION ORION PHARMA-ENT 2016-0230

PATIENT
  Sex: Female
  Weight: 64 kg

DRUGS (10)
  1. ENTARKIN [Concomitant]
     Active Substance: ENTACAPONE
     Route: 065
  2. MANTIDAN [Concomitant]
     Active Substance: AMANTADINE HYDROCHLORIDE
     Dosage: STRENGTH: 100 MG
     Route: 065
     Dates: start: 2003
  3. PROLOPA [Concomitant]
     Active Substance: BENSERAZIDE\LEVODOPA
     Dosage: STRENGTH: 50/200 MG
     Route: 065
  4. RASAGILINE [Concomitant]
     Active Substance: RASAGILINE
     Route: 065
  5. STALEVO [Suspect]
     Active Substance: CARBIDOPA\ENTACAPONE\LEVODOPA
     Indication: PARKINSON^S DISEASE
     Dosage: STRENGTH: 100/25/200 MG
     Route: 048
     Dates: start: 2013, end: 2013
  6. SIFROL [Concomitant]
     Active Substance: PRAMIPEXOLE
     Dosage: STRENGTH: 0.25 MG
     Route: 065
  7. PANTOPRAZOL [Concomitant]
     Active Substance: PANTOPRAZOLE SODIUM
     Dosage: STRENGTH: 10 MG
     Route: 065
  8. COMTAN [Suspect]
     Active Substance: ENTACAPONE
     Indication: PARKINSON^S DISEASE
     Dosage: STRENGTH: 200 MG
     Route: 065
     Dates: start: 2013
  9. DOMPERIDONA [Concomitant]
     Dosage: STRENGTH: 30 MG
     Route: 065
  10. VELIJA [Concomitant]
     Active Substance: DULOXETINE HYDROCHLORIDE
     Dosage: STRENGTH: 30 MG
     Route: 065
     Dates: start: 2003

REACTIONS (17)
  - Blood pressure decreased [Not Recovered/Not Resolved]
  - Rhabdomyolysis [Not Recovered/Not Resolved]
  - Asthenia [Not Recovered/Not Resolved]
  - Abasia [Unknown]
  - Chorea [Recovered/Resolved]
  - Athetosis [Recovered/Resolved]
  - Abdominal pain upper [Unknown]
  - Dyspnoea [Unknown]
  - Headache [Not Recovered/Not Resolved]
  - Road traffic accident [Recovered/Resolved]
  - Nausea [Not Recovered/Not Resolved]
  - Aphasia [Unknown]
  - Muscle rigidity [Unknown]
  - Dizziness [Not Recovered/Not Resolved]
  - Akinesia [Recovered/Resolved]
  - Malaise [Not Recovered/Not Resolved]
  - Drug effect delayed [Unknown]
